FAERS Safety Report 6212626-3 (Version None)
Quarter: 2009Q2

REPORT INFORMATION
  Report Type: 
  Country: None (occurrence: None)
  Receive Date: 20090603
  Receipt Date: 20090309
  Transmission Date: 20091009
  Serious: No
  Sender: FDA-Public Use
  Company Number: US-BAYER-200915680NA

PATIENT
  Age: 47 Year
  Sex: Female
  Weight: 66 kg

DRUGS (3)
  1. MIRENA [Suspect]
     Indication: MENORRHAGIA
     Dosage: CONTINUOUS
     Route: 015
     Dates: start: 20090218
  2. ZOLOFT [Concomitant]
  3. SIMVASTATIN [Concomitant]

REACTIONS (1)
  - VAGINAL HAEMORRHAGE [None]
